FAERS Safety Report 16084739 (Version 1)
Quarter: 2019Q1

REPORT INFORMATION
  Report Type: Spontaneous
  Country: US (occurrence: US)
  Receive Date: 20190214
  Receipt Date: 20190214
  Transmission Date: 20190418
  Serious: No
  Sender: FDA-Public Use
  Company Number: None

PATIENT
  Age: 35 Year
  Sex: Female

DRUGS (1)
  1. MAKENA [Suspect]
     Active Substance: HYDROXYPROGESTERONE CAPROATE
     Indication: COMPLICATION OF PREGNANCY
     Dosage: ?          OTHER DOSE:275MG/1.1ML ;OTHER FREQUENCY:1 PEN Q 7 DAYS;?
     Route: 058
     Dates: start: 20181117

REACTIONS (1)
  - Asthma [None]
